FAERS Safety Report 10658029 (Version 1)
Quarter: 2014Q4

REPORT INFORMATION
  Report Type: Spontaneous
  Country: US (occurrence: US)
  Receive Date: 20141217
  Receipt Date: 20141217
  Transmission Date: 20150529
  Serious: No
  Sender: FDA-Public Use
  Company Number: US-GLAXOSMITHKLINE-A1060085A

PATIENT

DRUGS (1)
  1. VOTRIENT [Suspect]
     Active Substance: PAZOPANIB HYDROCHLORIDE
     Indication: RENAL CANCER
     Dosage: (4) 200 MG TABLETS, 800 MG DAILY
     Route: 048
     Dates: start: 20131004, end: 20140115

REACTIONS (2)
  - Fatigue [Unknown]
  - Hallucination [Unknown]

NARRATIVE: CASE EVENT DATE: 201401
